FAERS Safety Report 10054407 (Version 2)
Quarter: 2014Q2

REPORT INFORMATION
  Report Type: Spontaneous
  Country: US (occurrence: US)
  Receive Date: 20140402
  Receipt Date: 20140602
  Transmission Date: 20141212
  Serious: No
  Sender: FDA-Public Use
  Company Number: US-AMGEN-USASP2014020966

PATIENT
  Age: 53 Year
  Sex: Female
  Weight: 87.53 kg

DRUGS (4)
  1. ENBREL [Suspect]
     Indication: RHEUMATOID ARTHRITIS
     Dosage: 50 MILLIGRAM  ONCE WEEKLY
     Route: 065
     Dates: start: 20131105
  2. METHOTREXATE [Concomitant]
     Indication: RHEUMATOID ARTHRITIS
     Dosage: 2.5 MG 4 TABLETS, QWK
     Route: 048
     Dates: start: 20120402
  3. FOLIC ACID [Concomitant]
     Indication: RHEUMATOID ARTHRITIS
     Dosage: 1 MG, QD
     Route: 048
     Dates: start: 20120402
  4. NABUMETONE [Concomitant]
     Indication: RHEUMATOID ARTHRITIS
     Dosage: 750 MG, BID
     Route: 048
     Dates: start: 20120130

REACTIONS (1)
  - Mammogram abnormal [Not Recovered/Not Resolved]
